FAERS Safety Report 13175370 (Version 1)
Quarter: 2017Q1

REPORT INFORMATION
  Report Type: Spontaneous
  Country: US (occurrence: US)
  Receive Date: 20170201
  Receipt Date: 20170201
  Transmission Date: 20170428
  Serious: No
  Sender: FDA-Public Use
  Company Number: US-BAYER-2017-018272

PATIENT
  Age: 16 Year
  Sex: Male

DRUGS (2)
  1. KOGENATE FS [Suspect]
     Active Substance: ANTIHEMOPHILIC FACTOR, HUMAN RECOMBINANT
     Indication: FACTOR VIII DEFICIENCY
     Dosage: 1500 U, MONDAY AND WEDNESDAY AND PRN MILD/SOFT TISSUE
     Route: 042
     Dates: start: 20141120
  2. KOGENATE FS [Suspect]
     Active Substance: ANTIHEMOPHILIC FACTOR, HUMAN RECOMBINANT
     Indication: FACTOR VIII DEFICIENCY
     Dosage: 1500 U, MONDAY AND WEDNESDAY AND PRN MILD/SOFT TISSUE
     Route: 042
     Dates: start: 20141120

REACTIONS (1)
  - Gait disturbance [None]

NARRATIVE: CASE EVENT DATE: 20170126
